FAERS Safety Report 8638385 (Version 2)
Quarter: 2014Q3

REPORT INFORMATION
  Report Type: Spontaneous
  Country: US (occurrence: US)
  Receive Date: 20120627
  Receipt Date: 20140826
  Transmission Date: 20150326
  Serious: Yes (Death, Hospitalization)
  Sender: FDA-Public Use
  Company Number: US-GLAXOSMITHKLINE-A0840599A

PATIENT
  Age: 68 Year
  Sex: Female
  Weight: 46.4 kg

DRUGS (1)
  1. AVANDIA [Suspect]
     Active Substance: ROSIGLITAZONE MALEATE
     Indication: DIABETES MELLITUS
     Dosage: 4MG PER DAY
     Route: 048
     Dates: start: 2004, end: 20070429

REACTIONS (7)
  - Macular oedema [Unknown]
  - Coronary artery disease [Fatal]
  - Cardio-respiratory arrest [Fatal]
  - Tobacco abuse [Fatal]
  - Cardiac failure congestive [Fatal]
  - Cerebrovascular accident [Unknown]
  - Chest pain [Unknown]
